FAERS Safety Report 5009996-0 (Version None)
Quarter: 2006Q2

REPORT INFORMATION
  Report Type: 
  Country: None (occurrence: None)
  Receive Date: 20060522
  Receipt Date: 20060509
  Transmission Date: 20061013
  Serious: Yes (Life-Threatening)
  Sender: FDA-Public Use
  Company Number: ZONI002305

PATIENT
  Age: 79 Year
  Sex: Female

DRUGS (19)
  1. ZONISAMIDE [Suspect]
     Indication: EPILEPSY
     Dosage: 200 MG, ORAL
     Route: 048
     Dates: start: 20060211, end: 20060328
  2. FAMOTIDINE [Concomitant]
  3. DECADRON SRC [Concomitant]
  4. FAMOTIDINE [Concomitant]
  5. DECADRON [Concomitant]
  6. GLYCEOL [Concomitant]
  7. ROHYPNOL (FLUNITRAZEPAM) [Concomitant]
  8. VEEN-F (EUFUSOL) [Concomitant]
  9. ALEVIATIN (PHENYTOIN SODIUM) [Concomitant]
  10. PIPERACILLIN SODIUM [Concomitant]
  11. LACTEC-G     (RINGER) [Concomitant]
  12. AMINOFLUID [Concomitant]
  13. RACOL          (SOLUTIONS FOR PARENTERAL NUTRITION) [Concomitant]
  14. TELEMINSOFT          (BISACODYL) [Concomitant]
  15. PURSENNID (SENNOSIDE) [Concomitant]
  16. KENALOG [Concomitant]
  17. HEAVY MAGNESIUM OXIDE   (MAGNESIUM OXIDE) [Concomitant]
  18. MARZULENE S [Concomitant]
  19. MAGLAX  (MAGNESIUM OXIDE) [Concomitant]

REACTIONS (24)
  - ACTIVITIES OF DAILY LIVING IMPAIRED [None]
  - ACUTE RESPIRATORY DISTRESS SYNDROME [None]
  - BACTERIA SPUTUM IDENTIFIED [None]
  - BLOOD BICARBONATE INCREASED [None]
  - BLOOD PH DECREASED [None]
  - BODY TEMPERATURE INCREASED [None]
  - DEPRESSED LEVEL OF CONSCIOUSNESS [None]
  - DRUG INEFFECTIVE [None]
  - EOSINOPHILIC PNEUMONIA ACUTE [None]
  - HEART RATE INCREASED [None]
  - HEMIPARESIS [None]
  - INFECTION [None]
  - INTERSTITIAL LUNG DISEASE [None]
  - LUNG DISORDER [None]
  - LYMPHOCYTE PERCENTAGE DECREASED [None]
  - NEUTROPHIL PERCENTAGE INCREASED [None]
  - OEDEMA PERIPHERAL [None]
  - PERICARDIAL EFFUSION [None]
  - PLEURAL EFFUSION [None]
  - PNEUMONIA ASPIRATION [None]
  - PNEUMONIA BACTERIAL [None]
  - PNEUMONIA PRIMARY ATYPICAL [None]
  - STAPHYLOCOCCAL INFECTION [None]
  - TRACHEAL DEVIATION [None]
